FAERS Safety Report 8178407-9 (Version None)
Quarter: 2012Q1

REPORT INFORMATION
  Report Type: 
  Country: None (occurrence: None)
  Receive Date: 20120301
  Receipt Date: 20120227
  Transmission Date: 20120608
  Serious: Yes (Hospitalization, Other)
  Sender: FDA-Public Use
  Company Number: US-PFIZER INC-2012051337

PATIENT
  Sex: Male
  Weight: 62.585 kg

DRUGS (1)
  1. PRISTIQ [Suspect]
     Indication: DEPRESSION
     Dosage: 100 MG, DAILY
     Route: 048

REACTIONS (4)
  - BIPOLAR DISORDER [None]
  - DRUG INEFFECTIVE [None]
  - AGGRESSION [None]
  - ABNORMAL BEHAVIOUR [None]
